FAERS Safety Report 13430422 (Version 1)
Quarter: 2017Q2

REPORT INFORMATION
  Report Type: Spontaneous
  Country: US (occurrence: US)
  Receive Date: 20170411
  Receipt Date: 20170411
  Transmission Date: 20170830
  Serious: Yes (Hospitalization)
  Sender: FDA-Public Use
  Company Number: None

PATIENT
  Age: 77 Year
  Sex: Male
  Weight: 119.1 kg

DRUGS (1)
  1. OXYCODONE [Suspect]
     Active Substance: OXYCODONE
     Dates: start: 20160523

REACTIONS (4)
  - Anxiety [None]
  - Delusion [None]
  - Paranoia [None]
  - Delirium [None]

NARRATIVE: CASE EVENT DATE: 20160523
